FAERS Safety Report 15880173 (Version 1)
Quarter: 2019Q1

REPORT INFORMATION
  Report Type: Report from Study
  Country: MX (occurrence: MX)
  Receive Date: 20190128
  Receipt Date: 20190128
  Transmission Date: 20190417
  Serious: Yes (Death)
  Sender: FDA-Public Use
  Company Number: PHHY2019MX018532

PATIENT
  Sex: Male
  Weight: 108 kg

DRUGS (1)
  1. ENTRESTO [Suspect]
     Active Substance: SACUBITRIL\VALSARTAN
     Indication: CARDIAC VALVE DISEASE
     Dosage: 50 MG, QD
     Route: 048
     Dates: start: 201811

REACTIONS (3)
  - Product use in unapproved indication [Unknown]
  - Death [Fatal]
  - Inappropriate schedule of product administration [Unknown]
